FAERS Safety Report 9782676 (Version 1)
Quarter: 2013Q4

REPORT INFORMATION
  Report Type: Spontaneous
  Country: DE (occurrence: None)
  Receive Date: 20131220
  Receipt Date: 20131220
  Transmission Date: 20140711
  Serious: Yes (Other)
  Sender: FDA-Public Use
  Company Number: 2075971

PATIENT
  Age: 36 Year
  Sex: Female
  Weight: 70 kg

DRUGS (12)
  1. (PROPOFOL) [Suspect]
     Indication: LAPAROSCOPY
     Dosage: 5.4. - 5.4. GESTATIONAL WEEK, UNKNOWN?INTRAVENOUS (NOT OTHERWISE SPECIFIED)
     Route: 042
     Dates: start: 20080829, end: 20080829
  2. (PROPOFOL) [Suspect]
     Indication: ECTOPIC PREGNANCY
     Dosage: 5.4. - 5.4. GESTATIONAL WEEK, UNKNOWN?INTRAVENOUS (NOT OTHERWISE SPECIFIED)
     Route: 042
     Dates: start: 20080829, end: 20080829
  3. (PROPOFOL) [Suspect]
     Indication: CYST
     Dosage: 5.4. - 5.4. GESTATIONAL WEEK, UNKNOWN?INTRAVENOUS (NOT OTHERWISE SPECIFIED)
     Route: 042
     Dates: start: 20080829, end: 20080829
  4. ROCURONIUM BROMIDE [Suspect]
     Indication: LAPAROSCOPY
     Dosage: 5.4. - 5.4. GESTATIONAL WEEK, UNKNOWN?INTRAVENOUS (NOT OTHERWISE SPECIFIED)??
     Route: 042
     Dates: start: 20080829, end: 20080829
  5. ROCURONIUM BROMIDE [Suspect]
     Indication: ECTOPIC PREGNANCY
     Dosage: 5.4. - 5.4. GESTATIONAL WEEK, UNKNOWN?INTRAVENOUS (NOT OTHERWISE SPECIFIED)??
     Route: 042
     Dates: start: 20080829, end: 20080829
  6. ROCURONIUM BROMIDE [Suspect]
     Indication: CYST
     Dosage: 5.4. - 5.4. GESTATIONAL WEEK, UNKNOWN?INTRAVENOUS (NOT OTHERWISE SPECIFIED)??
     Route: 042
     Dates: start: 20080829, end: 20080829
  7. CAFEDRINE W/THEODRENALINE [Suspect]
     Indication: LAPAROSCOPY
     Dosage: 5.4. - 5.4. GESTATIONAL WEEK, UNKNOWN?INTRAVENOUS (NOT OTHERWISE SPECIFIED)
     Route: 042
     Dates: start: 20080829, end: 20080829
  8. FENTANYL [Suspect]
     Indication: LAPAROSCOPY
     Dosage: 5.4. - 5.4. GESTATIONAL WEEK (UNKNOWN)?INTRAVENOUS (NOT OTHERWISE SPECIFIED)
     Route: 042
     Dates: start: 20080829, end: 20080829
  9. FENTANYL [Suspect]
     Indication: ECTOPIC PREGNANCY
     Dosage: 5.4. - 5.4. GESTATIONAL WEEK (UNKNOWN)?INTRAVENOUS (NOT OTHERWISE SPECIFIED)
     Route: 042
     Dates: start: 20080829, end: 20080829
  10. FENTANYL [Suspect]
     Indication: CYST
     Dosage: 5.4. - 5.4. GESTATIONAL WEEK (UNKNOWN)?INTRAVENOUS (NOT OTHERWISE SPECIFIED)
     Route: 042
     Dates: start: 20080829, end: 20080829
  11. METAMIZOLE [Suspect]
     Indication: LAPAROSCOPY
     Dosage: 5.4. - 5.4. GESTATIONAL WEEK (UNKNOWN)?INTRAVENOUS (NOT PTHERWISE SPECIFIED)?
     Route: 042
     Dates: start: 20080829, end: 20080829
  12. (SALBUTAMOL) [Concomitant]

REACTIONS (2)
  - Selective abortion [None]
  - Maternal exposure during pregnancy [None]
